FAERS Safety Report 11100442 (Version 1)
Quarter: 2015Q2

REPORT INFORMATION
  Report Type: Spontaneous
  Country: GB (occurrence: GB)
  Receive Date: 20150508
  Receipt Date: 20150508
  Transmission Date: 20150821
  Serious: Yes (Life-Threatening)
  Sender: FDA-Public Use
  Company Number: GB-MERCK-1505GBR002376

PATIENT
  Age: 76 Year
  Sex: Female

DRUGS (2)
  1. DEXAMETHASONE TABLETS BP  2.0MG [Suspect]
     Active Substance: DEXAMETHASONE
     Dosage: 4 MG, (4 MG, 1 IN 1 D)
     Route: 048
     Dates: start: 20150420
  2. DEXAMETHASONE TABLETS BP  2.0MG [Suspect]
     Active Substance: DEXAMETHASONE
     Indication: PRODUCT USED FOR UNKNOWN INDICATION
     Dosage: 6 MG IN THE MORNING
     Route: 048
     Dates: start: 20150417, end: 20150419

REACTIONS (4)
  - Diarrhoea [Unknown]
  - Dyspnoea [Unknown]
  - Abdominal pain [Unknown]
  - Swelling face [Unknown]

NARRATIVE: CASE EVENT DATE: 201504
